FAERS Safety Report 7513069-2 (Version None)
Quarter: 2011Q2

REPORT INFORMATION
  Report Type: 
  Country: None (occurrence: None)
  Receive Date: 20110531
  Receipt Date: 20110526
  Transmission Date: 20111010
  Serious: Yes (Hospitalization)
  Sender: FDA-Public Use
  Company Number: US-BRISTOL-MYERS SQUIBB COMPANY-15565591

PATIENT
  Age: 74 Year
  Sex: Male

DRUGS (17)
  1. PREDNISONE [Concomitant]
  2. CELEBREX [Concomitant]
  3. GLUCOSAMINE [Concomitant]
  4. DILTIAZEM HCL [Concomitant]
     Route: 048
  5. INSULIN SLIDING SCALE [Concomitant]
  6. DIOVAN HCT [Concomitant]
     Dosage: 1 DF: 160/12.5 MG
     Route: 048
  7. MULTI-VITAMIN [Concomitant]
  8. ANDROGEL [Concomitant]
  9. CARVEDILOL [Concomitant]
  10. IMODIUM [Concomitant]
  11. IPILIMUMAB [Suspect]
     Indication: MALIGNANT MELANOMA
     Dosage: LAST DOSE ON 08-FEB-2011
     Route: 042
     Dates: start: 20110118, end: 20110208
  12. ALLOPURINOL [Concomitant]
     Route: 048
  13. PROTONIX [Concomitant]
  14. PLAVIX [Concomitant]
  15. ASPIRIN [Concomitant]
     Route: 048
  16. ASPIRIN [Concomitant]
     Route: 048
  17. K-DUR [Concomitant]

REACTIONS (3)
  - GASTROINTESTINAL HAEMORRHAGE [None]
  - DIARRHOEA [None]
  - DEHYDRATION [None]
